FAERS Safety Report 8272590 (Version 5)
Quarter: 2013Q2

REPORT INFORMATION
  Report Type: Report from Study
  Country: CA (occurrence: CA)
  Receive Date: 20111202
  Receipt Date: 20130626
  Transmission Date: 20140414
  Serious: Yes (Hospitalization, Other)
  Sender: FDA-Public Use
  Company Number: CA-ROCHE-1016830

PATIENT
  Age: 53 Year
  Sex: Female
  Weight: 52.6 kg

DRUGS (25)
  1. RITUXAN [Suspect]
     Indication: RHEUMATOID ARTHRITIS
     Dosage: FREQUENCY: DAY 1 AND DAY 15
     Route: 042
     Dates: start: 20080902
  2. PREDNISONE [Suspect]
     Indication: PRODUCT USED FOR UNKNOWN INDICATION
     Route: 065
  3. OGEN [Concomitant]
     Route: 065
  4. TOPAMAX [Concomitant]
     Route: 065
  5. WELLBUTRIN [Concomitant]
     Route: 065
  6. CELEXA [Concomitant]
     Route: 065
  7. TRAZODONE [Concomitant]
     Route: 065
  8. VAGIFEM [Concomitant]
     Route: 065
  9. VERAPAMIL [Concomitant]
     Route: 065
  10. COVERSYL [Concomitant]
     Indication: CARDIAC DISORDER
     Route: 065
  11. PAMIDRONATE [Concomitant]
     Route: 065
  12. LOMOTIL [Concomitant]
     Route: 065
  13. LORAZEPAM [Concomitant]
     Route: 065
  14. MAXALT [Concomitant]
     Route: 065
  15. LOSEC (CANADA) [Concomitant]
     Route: 065
  16. CROMOLYN [Concomitant]
     Route: 065
  17. BUSCOPAN [Concomitant]
     Route: 065
  18. IMODIUM [Concomitant]
     Route: 065
  19. REACTINE (CANADA) [Concomitant]
     Route: 065
  20. ZOMETA [Concomitant]
  21. NEXIUM [Concomitant]
  22. ZOPICLONE [Concomitant]
  23. DIPHENHYDRAMINE HCL [Concomitant]
     Indication: PREMEDICATION
     Route: 048
     Dates: start: 20090821
  24. ACETAMINOPHEN [Concomitant]
     Indication: PREMEDICATION
     Route: 048
     Dates: start: 20090821
  25. METHYLPREDNISOLONE [Concomitant]
     Indication: PREMEDICATION
     Route: 042
     Dates: start: 20090821

REACTIONS (4)
  - Gastroenteritis radiation [Unknown]
  - Influenza [Recovered/Resolved]
  - Hypotension [Not Recovered/Not Resolved]
  - Weight decreased [Not Recovered/Not Resolved]
